FAERS Safety Report 4336009-6 (Version None)
Quarter: 2004Q2

REPORT INFORMATION
  Report Type: 
  Country: None (occurrence: None)
  Receive Date: 20040406
  Receipt Date: 20040326
  Transmission Date: 20050107
  Serious: Yes (Death)
  Sender: FDA-Public Use
  Company Number: 2004206706FR

PATIENT
  Age: 1 Day

DRUGS (1)
  1. PREPIDIL [Suspect]
     Dosage: VAGINAL
     Route: 067
     Dates: start: 20040201, end: 20040201

REACTIONS (4)
  - COMPLICATIONS OF MATERNAL EXPOSURE TO THERAPEUTIC DRUGS [None]
  - DEATH NEONATAL [None]
  - MATERNAL DRUGS AFFECTING FOETUS [None]
  - UTERINE RUPTURE [None]
